FAERS Safety Report 5487701-1 (Version None)
Quarter: 2007Q4

REPORT INFORMATION
  Report Type: 
  Country: None (occurrence: None)
  Receive Date: 20071017
  Receipt Date: 20071010
  Transmission Date: 20080405
  Serious: Yes (Death, Other)
  Sender: FDA-Public Use
  Company Number: PHBS2007US16873

PATIENT
  Age: 14 Year
  Sex: Male

DRUGS (6)
  1. CYCLOSPORINE [Suspect]
     Indication: STEM CELL TRANSPLANT
     Dosage: 7 MG/KG/D
  2. METHOTREXATE [Concomitant]
     Indication: STEM CELL TRANSPLANT
  3. LORAZEPAM [Concomitant]
  4. ONDANSETRON [Concomitant]
  5. MAGNESIUM SULFATE [Concomitant]
  6. PENTAMIDINE ISETHIONATE [Concomitant]

REACTIONS (6)
  - BUCCAL POLYP [None]
  - GRAFT VERSUS HOST DISEASE [None]
  - LEUKAEMIA RECURRENT [None]
  - MASS EXCISION [None]
  - POLYPECTOMY [None]
  - TONGUE DISORDER [None]
